FAERS Safety Report 10298201 (Version 1)
Quarter: 2014Q3

REPORT INFORMATION
  Report Type: Spontaneous
  Country: US (occurrence: US)
  Receive Date: 20140711
  Receipt Date: 20140711
  Transmission Date: 20150326
  Serious: No
  Sender: FDA-Public Use
  Company Number: US-GLAXOSMITHKLINE-A1058537A

PATIENT
  Age: 24 Year
  Sex: Male

DRUGS (3)
  1. FLOVENT [Suspect]
     Active Substance: FLUTICASONE PROPIONATE
     Indication: OESOPHAGITIS
     Dosage: 2PUFF TWICE PER DAY
     Route: 055
     Dates: start: 20140127
  2. ADDERALL [Concomitant]
     Active Substance: AMPHETAMINE ASPARTATE\AMPHETAMINE SULFATE\DEXTROAMPHETAMINE SACCHARATE\DEXTROAMPHETAMINE SULFATE
  3. CENTRUM MULTIVITAMIN [Concomitant]

REACTIONS (5)
  - Throat irritation [Recovered/Resolved]
  - Pharyngeal oedema [Unknown]
  - Lymphadenopathy [Unknown]
  - Urticaria [Unknown]
  - Food allergy [Unknown]

NARRATIVE: CASE EVENT DATE: 20130127
